FAERS Safety Report 14499132 (Version 1)
Quarter: 2018Q1

REPORT INFORMATION
  Report Type: Spontaneous
  Country: US (occurrence: US)
  Receive Date: 20180207
  Receipt Date: 20180207
  Transmission Date: 20180509
  Serious: No
  Sender: FDA-Public Use
  Company Number: US-JAZZ-2017-US-001112

PATIENT
  Sex: Female

DRUGS (6)
  1. PRIALT [Suspect]
     Active Substance: ZICONOTIDE ACETATE
     Dosage: 0.152 ?G, QH
     Route: 037
     Dates: start: 20160817
  2. BUPIVACAINE. [Suspect]
     Active Substance: BUPIVACAINE
     Dosage: 7.605 ?G, QD
     Dates: start: 20160818
  3. CLONIDINE. [Suspect]
     Active Substance: CLONIDINE
     Dosage: 101.16 ?G, QD
     Dates: start: 20160818
  4. BUPIVACAINE. [Suspect]
     Active Substance: BUPIVACAINE
     Indication: PRODUCT USED FOR UNKNOWN INDICATION
     Dosage: 7.860 MG, QD
     Dates: start: 20160810
  5. CLONIDINE. [Suspect]
     Active Substance: CLONIDINE
     Indication: PRODUCT USED FOR UNKNOWN INDICATION
     Dosage: 104.55 ?G, QD
     Dates: start: 20160810
  6. PRIALT [Suspect]
     Active Substance: ZICONOTIDE ACETATE
     Indication: PRODUCT USED FOR UNKNOWN INDICATION
     Dosage: 0.157 ?G, QH
     Route: 037
     Dates: start: 20160810, end: 20160817

REACTIONS (1)
  - Movement disorder [Recovered/Resolved]
